FAERS Safety Report 10095467 (Version 1)
Quarter: 2014Q2

REPORT INFORMATION
  Report Type: Spontaneous
  Country: CN (occurrence: CN)
  Receive Date: 20140422
  Receipt Date: 20140422
  Transmission Date: 20141212
  Serious: Yes (Other)
  Sender: FDA-Public Use
  Company Number: CN-PFIZER INC-2014105768

PATIENT
  Age: 50 Year
  Sex: Male
  Weight: 62 kg

DRUGS (1)
  1. DIFLUCAN [Suspect]
     Indication: FUNGAL INFECTION
     Dosage: 0.4 G, 1X/DAY
     Route: 041
     Dates: start: 20131019, end: 20131021

REACTIONS (1)
  - Delirium [Recovering/Resolving]
